FAERS Safety Report 9905999 (Version 1)
Quarter: 2014Q1

REPORT INFORMATION
  Report Type: Spontaneous
  Country: AU (occurrence: AU)
  Receive Date: 20140218
  Receipt Date: 20140218
  Transmission Date: 20141002
  Serious: Yes (Life-Threatening, Other)
  Sender: FDA-Public Use
  Company Number: AU-BAYER-2014-020816

PATIENT
  Age: 63 Year
  Sex: Male

DRUGS (5)
  1. SOTALOL [Suspect]
     Indication: SUPRAVENTRICULAR TACHYCARDIA
     Dosage: 80 MG, ONCE
     Route: 048
  2. VERAPAMIL [Suspect]
     Indication: SUPRAVENTRICULAR TACHYCARDIA
     Dosage: 5 MG, ONCE
     Route: 042
  3. ADENOSINE [Concomitant]
     Indication: TACHYCARDIA
     Dosage: 18 MG, UNK
     Route: 042
  4. ADENOSINE [Concomitant]
     Indication: SUPRAVENTRICULAR TACHYCARDIA
     Dosage: 18 MG, UNK
     Route: 042
  5. DIGOXIN [Concomitant]
     Dosage: 500 ?G, UNK
     Route: 042

REACTIONS (3)
  - Cardiogenic shock [Recovered/Resolved]
  - Tachycardia induced cardiomyopathy [Recovered/Resolved]
  - Acute left ventricular failure [Recovered/Resolved]
